FAERS Safety Report 20201082 (Version 12)
Quarter: 2024Q3

REPORT INFORMATION
  Report Type: Report from Study
  Country: DE (occurrence: DE)
  Receive Date: 20211217
  Receipt Date: 20240927
  Transmission Date: 20241017
  Serious: No
  Sender: ROCHE
  Company Number: DE-ROCHE-2917566

PATIENT
  Age: 42 Year
  Sex: Male

DRUGS (5)
  1. OCREVUS [Suspect]
     Active Substance: OCRELIZUMAB
     Indication: Relapsing-remitting multiple sclerosis
     Route: 042
     Dates: start: 20210910
  2. OCREVUS [Suspect]
     Active Substance: OCRELIZUMAB
     Dosage: 3RD MAINTENANCE DOSE IN LATE OCTOBER 2023
     Route: 042
     Dates: start: 20210910, end: 20210910
  3. OCREVUS [Suspect]
     Active Substance: OCRELIZUMAB
     Dosage: 3RD MAINTENANCE DOSE IN LATE OCTOBER 2023
     Route: 042
     Dates: start: 20240326, end: 20240326
  4. PANTOPRAZOLE [Concomitant]
     Active Substance: PANTOPRAZOLE
  5. BIFIDOBACTERIUM BIFIDUM [Concomitant]
     Active Substance: BIFIDOBACTERIUM BIFIDUM
     Dosage: MIMBB75 AS NEEDED

REACTIONS (9)
  - Flushing [Recovered/Resolved]
  - Dyspepsia [Recovered/Resolved]
  - COVID-19 [Recovered/Resolved]
  - Dyspnoea [Recovered/Resolved]
  - B-lymphocyte count decreased [Recovered/Resolved]
  - Micturition urgency [Recovered/Resolved]
  - Carpal tunnel syndrome [Not Recovered/Not Resolved]
  - Peripheral swelling [Not Recovered/Not Resolved]
  - Spinal pain [Not Recovered/Not Resolved]

NARRATIVE: CASE EVENT DATE: 20210910
